FAERS Safety Report 6840885-2 (Version None)
Quarter: 2010Q3

REPORT INFORMATION
  Report Type: 
  Country: None (occurrence: None)
  Receive Date: 20100714
  Receipt Date: 20061128
  Transmission Date: 20110219
  Serious: No
  Sender: FDA-Public Use
  Company Number: US-PFIZER INC-2006148034

PATIENT
  Sex: Male

DRUGS (7)
  1. CHANTIX [Suspect]
     Dates: start: 20061124
  2. NORVASC [Concomitant]
  3. LOTENSIN [Concomitant]
  4. LEXAPRO [Concomitant]
  5. ATENOLOL [Concomitant]
  6. DEMECLOCYCLINE HCL [Concomitant]
  7. ALL OTHER THERAPEUTIC PRODUCTS [Concomitant]

REACTIONS (2)
  - ABDOMINAL PAIN UPPER [None]
  - DYSPEPSIA [None]
